FAERS Safety Report 7281578 (Version 4)
Quarter: 2012Q4

REPORT INFORMATION
  Report Type: 
  Country: US (occurrence: US)
  Receive Date: 20100217
  Receipt Date: 20121024
  Transmission Date: 20130627
  Serious: Yes (Hospitalization, Other)
  Sender: FDA-Public Use
  Company Number: US-ELI_LILLY_AND_COMPANY-US201002003762

PATIENT
  Sex: Male
  Weight: 117.1 kg

DRUGS (10)
  1. BYETTA [Suspect]
     Indication: DIABETES MELLITUS
     Dosage: 5 ug, unknown
     Route: 058
     Dates: start: 20070424
  2. BYETTA [Suspect]
     Dosage: 10 ug, bid
     Route: 058
     Dates: start: 2007, end: 20091016
  3. METFORMIN [Concomitant]
     Indication: DIABETES MELLITUS
     Dosage: 1000 mg, bid
  4. SIMVASTATIN [Concomitant]
     Indication: HYPERTRIGLYCERIDAEMIA
     Dosage: 80 mg, qd
  5. LOPID [Concomitant]
     Indication: HYPERTRIGLYCERIDAEMIA
     Dosage: 600 mg, bid
  6. GLIPIZIDE [Concomitant]
     Indication: DIABETES MELLITUS
     Dosage: 5 mg, qd
  7. TRICOR [Concomitant]
     Dosage: 145 mg, qd
     Route: 048
  8. ASPIRIN [Concomitant]
     Dosage: 81 mg, qd
     Route: 048
  9. SAW PALMETTO [Concomitant]
     Dosage: 1 DF, qd
     Route: 048
  10. GARLIC [Concomitant]
     Dosage: 1 DF, qd
     Route: 048

REACTIONS (2)
  - Pancreatitis [Recovered/Resolved]
  - Gastrointestinal disorder [Unknown]
